FAERS Safety Report 7450928-3 (Version None)
Quarter: 2011Q2

REPORT INFORMATION
  Report Type: 
  Country: None (occurrence: None)
  Receive Date: 20110502
  Receipt Date: 20110422
  Transmission Date: 20111010
  Serious: Yes (Death)
  Sender: FDA-Public Use
  Company Number: US-PFIZER INC-2011087777

PATIENT
  Sex: Male

DRUGS (1)
  1. VFEND [Suspect]
     Dosage: 300 MG, 2X/DAY
     Dates: start: 20110221

REACTIONS (1)
  - DEATH [None]
